FAERS Safety Report 6634442-0 (Version None)
Quarter: 2010Q1

REPORT INFORMATION
  Report Type: 
  Country: None (occurrence: None)
  Receive Date: 20100315
  Receipt Date: 20100310
  Transmission Date: 20100710
  Serious: Yes (Hospitalization, Other)
  Sender: FDA-Public Use
  Company Number: IT-ROXANE LABORATORIES, INC.-2010-RO-00250RO

PATIENT
  Age: 7 Year
  Sex: Female
  Weight: 34 kg

DRUGS (7)
  1. RISPERIDONE [Suspect]
     Indication: SCHIZOPHRENIA
  2. LITHIUM CARBONATE [Suspect]
     Indication: SCHIZOPHRENIA
  3. ARIPIPRAZOLE [Suspect]
     Indication: SCHIZOPHRENIA
     Dosage: 5 MG
  4. ARIPIPRAZOLE [Suspect]
     Dosage: 15 MG
  5. CLOZAPINE [Suspect]
     Indication: SCHIZOPHRENIA
     Dosage: 25 MG
  6. VALPROIC ACID [Suspect]
     Indication: SCHIZOPHRENIA
     Dosage: 900 MG
  7. TAMOXIFEN CITRATE [Suspect]
     Indication: PRECOCIOUS PUBERTY
     Dosage: 10 MG

REACTIONS (14)
  - ABNORMAL BEHAVIOUR [None]
  - AGGRESSION [None]
  - CONSTIPATION [None]
  - DRUG INEFFECTIVE [None]
  - ENURESIS [None]
  - INCREASED APPETITE [None]
  - NAUSEA [None]
  - NEUTROPENIA [None]
  - SCHIZOPHRENIA [None]
  - SEDATION [None]
  - TACHYCARDIA [None]
  - VOMITING [None]
  - WEIGHT INCREASED [None]
  - WHITE BLOOD CELL COUNT DECREASED [None]
